FAERS Safety Report 10345141 (Version 2)
Quarter: 2015Q2

REPORT INFORMATION
  Report Type: Spontaneous
  Country: US (occurrence: US)
  Receive Date: 20140728
  Receipt Date: 20150409
  Transmission Date: 20150821
  Serious: Yes (Hospitalization)
  Sender: FDA-Public Use
  Company Number: US-BAYER-2014-109567

PATIENT
  Age: 30 Year
  Sex: Female

DRUGS (19)
  1. MIRENA [Suspect]
     Active Substance: LEVONORGESTREL
     Dosage: 20 MCG/24HR, CONT
     Route: 015
     Dates: start: 20130306, end: 20140107
  2. TYLENOL [Concomitant]
     Active Substance: ACETAMINOPHEN
  3. NAPROXEN. [Concomitant]
     Active Substance: NAPROXEN
  4. PERCOCET [Concomitant]
     Active Substance: ACETAMINOPHEN\OXYCODONE HYDROCHLORIDE
  5. DILAUDID [Concomitant]
     Active Substance: HYDROMORPHONE HYDROCHLORIDE
  6. IBUPROFEN. [Concomitant]
     Active Substance: IBUPROFEN
  7. MOBIC [Concomitant]
     Active Substance: MELOXICAM
     Indication: HEADACHE
  8. COMPAZINE [Concomitant]
     Active Substance: PROCHLORPERAZINE MALEATE
  9. DIFLUCAN [Concomitant]
     Active Substance: FLUCONAZOLE
  10. FIORICET [Concomitant]
     Active Substance: ACETAMINOPHEN\BUTALBITAL\CAFFEINE
  11. TORADOL [Concomitant]
     Active Substance: KETOROLAC TROMETHAMINE
  12. FENTANYL. [Concomitant]
     Active Substance: FENTANYL
  13. MIRENA [Suspect]
     Active Substance: LEVONORGESTREL
     Dosage: 20 MCG/24HR, CONT
     Route: 015
     Dates: start: 20080401, end: 20130306
  14. FLEXERIL [Concomitant]
     Active Substance: CYCLOBENZAPRINE HYDROCHLORIDE
     Indication: NECK PAIN
  15. CELEXA [Concomitant]
     Active Substance: CITALOPRAM HYDROBROMIDE
     Dosage: 20 MG, UNK
     Route: 048
     Dates: start: 200907
  16. FIORINAL WITH CODEINE [Concomitant]
     Active Substance: ASPIRIN\BUTALBITAL\CAFFEINE\CODEINE PHOSPHATE
     Indication: HEADACHE
  17. HYDROCODONE [Concomitant]
     Active Substance: HYDROCODONE
  18. DIAMOX SEQUELS [Concomitant]
     Active Substance: ACETAZOLAMIDE
  19. SOLU-MEDROL [Concomitant]
     Active Substance: METHYLPREDNISOLONE SODIUM SUCCINATE

REACTIONS (13)
  - Intracranial pressure increased [None]
  - Injury [None]
  - Tinnitus [None]
  - Pain [None]
  - Malaise [None]
  - Back disorder [None]
  - Papilloedema [None]
  - Nausea [None]
  - Migraine [None]
  - Visual impairment [None]
  - Blindness [None]
  - Dizziness [None]
  - Vision blurred [None]

NARRATIVE: CASE EVENT DATE: 2008
